FAERS Safety Report 6054924-2 (Version None)
Quarter: 2009Q1

REPORT INFORMATION
  Report Type: 
  Country: None (occurrence: None)
  Receive Date: 20090128
  Receipt Date: 20090120
  Transmission Date: 20090719
  Serious: Yes (Hospitalization, Other)
  Sender: FDA-Public Use
  Company Number: PHHY2009BR01821

PATIENT
  Sex: Male
  Weight: 83 kg

DRUGS (8)
  1. EXELON [Suspect]
     Indication: DEMENTIA ALZHEIMER'S TYPE
     Dosage: 9MG/5CM^2, EVERY 24 HOUR
     Route: 062
     Dates: start: 20081201
  2. CARDIO AA [Concomitant]
     Dosage: 1 TABLET DAILY
     Route: 048
  3. LASIX [Concomitant]
     Indication: FLUID RETENTION
     Dosage: 1/2 TABLET DAILY
     Route: 048
     Dates: start: 20090103
  4. LASIX [Concomitant]
     Indication: SWELLING
  5. ZYLORIC [Concomitant]
     Indication: BLOOD URIC ACID INCREASED
     Dosage: 1 TABLET AT LUNCH TIME
     Route: 048
  6. TORVASTATINA [Concomitant]
     Indication: CARDIAC DISORDER
     Dosage: 1 TABLET DAILY
  7. MICARDIS [Concomitant]
     Indication: HYPERTENSION
     Dosage: 40MG HALF A TABLET/DAILY
     Route: 048
  8. EUTHYROX [Concomitant]
     Indication: HYPOTHYROIDISM
     Dosage: 75MG 1 TABLET DAILY
     Route: 048

REACTIONS (11)
  - APPLICATION SITE ERYTHEMA [None]
  - APPLICATION SITE PRURITUS [None]
  - BLOOD PRESSURE DECREASED [None]
  - COLD SWEAT [None]
  - DIZZINESS [None]
  - DYSPNOEA [None]
  - INFLUENZA [None]
  - MALAISE [None]
  - NASOPHARYNGITIS [None]
  - PRESYNCOPE [None]
  - SKIN DISCOLOURATION [None]
